FAERS Safety Report 8066645-5 (Version None)
Quarter: 2012Q1

REPORT INFORMATION
  Report Type: 
  Country: None (occurrence: None)
  Receive Date: 20120124
  Receipt Date: 20120120
  Transmission Date: 20120608
  Serious: Yes (Death, Other)
  Sender: FDA-Public Use
  Company Number: PHHY2012JP005226

PATIENT
  Sex: Male

DRUGS (2)
  1. PHENYTOIN SODIUM CAP [Suspect]
     Dosage: UNK UKN, UNK
  2. TEGRETOL [Suspect]
     Dosage: 100 MG, UNK
     Route: 048

REACTIONS (2)
  - OVERDOSE [None]
  - DEATH [None]
